FAERS Safety Report 5989385-2 (Version None)
Quarter: 2008Q4

REPORT INFORMATION
  Report Type: 
  Country: None (occurrence: None)
  Receive Date: 20081210
  Receipt Date: 20081210
  Transmission Date: 20090506
  Serious: Yes (Other)
  Sender: FDA-Public Use
  Company Number: US-KINGPHARMUSA00001-K200801392

PATIENT
  Sex: Female
  Weight: 65.76 kg

DRUGS (5)
  1. LEVOXYL [Suspect]
     Indication: HYPOTHYROIDISM
     Dosage: UNK
     Route: 048
     Dates: start: 20080101, end: 20080101
  2. LABETALOL HCL [Concomitant]
     Indication: HYPERTENSION
     Dosage: UNK
  3. FLOVENT [Concomitant]
     Indication: ASTHMA
     Dosage: UNK
  4. NASACORT [Concomitant]
     Indication: ASTHMA
     Dosage: UNK
  5. ATACAND [Concomitant]
     Indication: HYPERTENSION
     Dosage: UNK

REACTIONS (2)
  - ANAPHYLACTIC REACTION [None]
  - DYSPNOEA [None]
